FAERS Safety Report 17750508 (Version 1)
Quarter: 2020Q2

REPORT INFORMATION
  Report Type: Spontaneous
  Country: US (occurrence: US)
  Receive Date: 20200506
  Receipt Date: 20200506
  Transmission Date: 20200714
  Serious: No
  Sender: FDA-Public Use
  Company Number: None

PATIENT
  Age: 30 Year
  Sex: Female
  Weight: 144 kg

DRUGS (21)
  1. AIMOVIG [Suspect]
     Active Substance: ERENUMAB-AOOE
     Indication: HEMIPLEGIC MIGRAINE
     Dosage: ?          QUANTITY:1 INJECTION(S);OTHER FREQUENCY:EVERY 30 DAYS;?
     Route: 030
     Dates: start: 20200228, end: 20200228
  2. NORETHINDRONE. [Concomitant]
     Active Substance: NORETHINDRONE
  3. MOVANTIK [Concomitant]
     Active Substance: NALOXEGOL OXALATE
  4. MAGNESIUM [Concomitant]
     Active Substance: MAGNESIUM
  5. FISH OIL GUMMY [Concomitant]
  6. PROMETHAZINE [Concomitant]
     Active Substance: PROMETHAZINE HYDROCHLORIDE
  7. IMITREX [Concomitant]
     Active Substance: SUMATRIPTAN SUCCINATE
  8. BACLOFEN. [Concomitant]
     Active Substance: BACLOFEN
  9. OXYCODONE-ACETAMINOPHEN [Concomitant]
     Active Substance: ACETAMINOPHEN\OXYCODONE HYDROCHLORIDE
  10. PROBIOTIC (WOMAN^S FORMULA) [Concomitant]
  11. BIOTIN [Concomitant]
     Active Substance: BIOTIN
  12. UBRELVY [Suspect]
     Active Substance: UBROGEPANT
  13. BOTOX [Concomitant]
     Active Substance: ONABOTULINUMTOXINA
  14. REGLAN [Concomitant]
     Active Substance: METOCLOPRAMIDE HYDROCHLORIDE
  15. SUMATRIPTAN. [Concomitant]
     Active Substance: SUMATRIPTAN
  16. HYDROCODONE-ACETAMINOPHEN [Concomitant]
     Active Substance: ACETAMINOPHEN\HYDROCODONE
  17. MULTIVITAMIN GUMMIES [Concomitant]
  18. WEIDER RED YEAST RICE PLUS [Concomitant]
  19. ADDERALL [Concomitant]
     Active Substance: AMPHETAMINE ASPARTATE\AMPHETAMINE SULFATE\DEXTROAMPHETAMINE SACCHARATE\DEXTROAMPHETAMINE SULFATE
  20. GABAPENTIN. [Concomitant]
     Active Substance: GABAPENTIN
  21. SPIRONOLACTONE. [Concomitant]
     Active Substance: SPIRONOLACTONE

REACTIONS (13)
  - Feeling abnormal [None]
  - Peripheral swelling [None]
  - Migraine [None]
  - Drug hypersensitivity [None]
  - Joint swelling [None]
  - Feeling hot [None]
  - Gait disturbance [None]
  - Pain [None]
  - Paraesthesia [None]
  - Oedema [None]
  - Symptom recurrence [None]
  - Erythema [None]
  - Dysstasia [None]

NARRATIVE: CASE EVENT DATE: 20200229
